FAERS Safety Report 7649020-4 (Version None)
Quarter: 2011Q3

REPORT INFORMATION
  Report Type: 
  Country: None (occurrence: None)
  Receive Date: 20110802
  Receipt Date: 20110726
  Transmission Date: 20111222
  Serious: Yes (Other)
  Sender: FDA-Public Use
  Company Number: PT-AMGEN-PRTSP2011036919

PATIENT
  Age: 47 Year
  Sex: Male

DRUGS (2)
  1. ENBREL [Suspect]
     Indication: PSORIATIC ARTHROPATHY
     Dosage: 50 MG, WEEKLY
     Route: 058
     Dates: start: 20040714
  2. METHOTREXATE SODIUM [Concomitant]
     Indication: PSORIATIC ARTHROPATHY
     Dosage: 7.5 MG, WEEKLY
     Route: 048
     Dates: end: 20110314

REACTIONS (2)
  - HEPATIC STEATOSIS [None]
  - ALANINE AMINOTRANSFERASE INCREASED [None]
